FAERS Safety Report 10075107 (Version 1)
Quarter: 2014Q2

REPORT INFORMATION
  Report Type: Spontaneous
  Country: US (occurrence: US)
  Receive Date: 20140414
  Receipt Date: 20140414
  Transmission Date: 20141212
  Serious: Yes (Other)
  Sender: FDA-Public Use
  Company Number: US-ROCHE-1382203

PATIENT
  Sex: Female
  Weight: 127.12 kg

DRUGS (8)
  1. XOLAIR [Suspect]
     Indication: ASTHMA
     Route: 065
     Dates: start: 20140402
  2. ADVAIR [Concomitant]
     Route: 065
  3. PROAIR (UNITED STATES) [Concomitant]
     Route: 065
  4. ALBUTEROL [Concomitant]
     Route: 055
  5. NEXIUM [Concomitant]
     Route: 065
  6. NASONEX [Concomitant]
     Route: 065
  7. ATROVENT [Concomitant]
     Route: 065
  8. PREDNISONE [Concomitant]
     Route: 065

REACTIONS (2)
  - Swelling face [Unknown]
  - Sleep apnoea syndrome [Unknown]
